FAERS Safety Report 12156101 (Version 1)
Quarter: 2016Q1

REPORT INFORMATION
  Report Type: Spontaneous
  Country: ES (occurrence: ES)
  Receive Date: 20160307
  Receipt Date: 20160307
  Transmission Date: 20160526
  Serious: Yes (Other)
  Sender: FDA-Public Use
  Company Number: ES-SA-2016SA041056

PATIENT
  Sex: Female

DRUGS (6)
  1. APIDRA [Suspect]
     Active Substance: INSULIN GLULISINE
     Route: 065
     Dates: start: 20160222, end: 20160222
  2. LANTUS [Suspect]
     Active Substance: INSULIN GLARGINE
     Route: 065
     Dates: start: 20160222, end: 20160222
  3. LANTUS [Suspect]
     Active Substance: INSULIN GLARGINE
     Route: 065
  4. APIDRA [Suspect]
     Active Substance: INSULIN GLULISINE
     Route: 065
  5. APIDRA [Suspect]
     Active Substance: INSULIN GLULISINE
     Route: 065
  6. LANTUS [Suspect]
     Active Substance: INSULIN GLARGINE
     Route: 065

REACTIONS (2)
  - Suicide attempt [Unknown]
  - Hypoglycaemia [Recovered/Resolved]

NARRATIVE: CASE EVENT DATE: 20160222
